FAERS Safety Report 16276969 (Version 1)
Quarter: 2019Q2

REPORT INFORMATION
  Report Type: Spontaneous
  Country: AT (occurrence: AT)
  Receive Date: 20190506
  Receipt Date: 20190506
  Transmission Date: 20190711
  Serious: Yes (Other)
  Sender: FDA-Public Use
  Company Number: AT-JNJFOC-20190440261

PATIENT
  Age: 6 Decade
  Sex: Female
  Weight: 73 kg

DRUGS (5)
  1. IMUREK [Concomitant]
     Active Substance: AZATHIOPRINE
     Route: 065
  2. STELARA [Suspect]
     Active Substance: USTEKINUMAB
     Indication: CROHN^S DISEASE
     Route: 058
     Dates: start: 20180911
  3. STELARA [Suspect]
     Active Substance: USTEKINUMAB
     Indication: CROHN^S DISEASE
     Route: 058
     Dates: start: 20170614
  4. VITAMIN B DUO [Concomitant]
     Route: 065
  5. STELARA [Suspect]
     Active Substance: USTEKINUMAB
     Indication: CROHN^S DISEASE
     Route: 058
     Dates: start: 20170418

REACTIONS (14)
  - Ureterolithiasis [Unknown]
  - Hydronephrosis [Unknown]
  - Frequent bowel movements [Unknown]
  - Nephrolithiasis [Unknown]
  - Off label use [Unknown]
  - Proctalgia [Unknown]
  - Gastrointestinal infection [Unknown]
  - Inappropriate schedule of product administration [Unknown]
  - Sinusitis [Unknown]
  - Sensory disturbance [Unknown]
  - Influenza [Unknown]
  - Pruritus [Unknown]
  - Urethral stent insertion [Unknown]
  - Chest discomfort [Unknown]

NARRATIVE: CASE EVENT DATE: 201801
